FAERS Safety Report 5163390-0 (Version None)
Quarter: 2006Q4

REPORT INFORMATION
  Report Type: 
  Country: None (occurrence: None)
  Receive Date: 20061121
  Receipt Date: 20061108
  Transmission Date: 20070319
  Serious: Yes (Hospitalization)
  Sender: FDA-Public Use
  Company Number: 230316M06USA

PATIENT
  Age: 24 Year
  Sex: Female

DRUGS (9)
  1. REBIF [Suspect]
     Indication: MULTIPLE SCLEROSIS
     Dosage: SEE IMAGE
     Route: 058
     Dates: start: 20061018, end: 20061102
  2. REBIF [Suspect]
     Indication: MULTIPLE SCLEROSIS
     Dosage: SEE IMAGE
     Route: 058
     Dates: start: 20061103
  3. ELAVIL [Concomitant]
  4. ZOLOFT [Concomitant]
  5. SINGULAIR (MONTELUKAST /01362601/) [Concomitant]
  6. ALBUTEROL (SALBUTAMOL /00139501/) [Concomitant]
  7. PREVACID [Concomitant]
  8. BACLOFEN [Concomitant]
  9. DITROPAN (OXYBUTYNIN /00538901/) [Concomitant]

REACTIONS (4)
  - ABNORMAL BEHAVIOUR [None]
  - BLOOD PROLACTIN INCREASED [None]
  - DELUSION [None]
  - PSYCHOTIC DISORDER [None]
